FAERS Safety Report 24994040 (Version 1)
Quarter: 2025Q1

REPORT INFORMATION
  Report Type: Spontaneous
  Country: US (occurrence: US)
  Receive Date: 20250221
  Receipt Date: 20250221
  Transmission Date: 20250409
  Serious: Yes (Hospitalization)
  Sender: Haleon PLC
  Company Number: US-HALEON-2228938

PATIENT
  Age: 27 Year
  Sex: Female

DRUGS (1)
  1. ACETAMINOPHEN [Suspect]
     Active Substance: ACETAMINOPHEN
     Indication: Migraine

REACTIONS (8)
  - Toxicity to various agents [Unknown]
  - Mucosal disorder [Unknown]
  - Tachycardia [Unknown]
  - Liver function test abnormal [Unknown]
  - Vomiting [Unknown]
  - Yellow skin [Unknown]
  - Ocular icterus [Unknown]
  - Abdominal pain upper [Unknown]
